FAERS Safety Report 6178008-8 (Version None)
Quarter: 2009Q2

REPORT INFORMATION
  Report Type: 
  Country: None (occurrence: None)
  Receive Date: 20090430
  Receipt Date: 20090415
  Transmission Date: 20091009
  Serious: Yes (Other)
  Sender: FDA-Public Use
  Company Number: 2007S1005328

PATIENT
  Age: 11 Year
  Sex: Female

DRUGS (7)
  1. MERCAPTAMINE BITARTRATE (MERCAPTAMINE BITARTRATE) (150 MG) [Suspect]
     Indication: CYSTINOSIS
     Dosage: ; ORAL, 900 MG; DAILY; ORAL, ; ORAL
     Route: 048
     Dates: end: 20070701
  2. MERCAPTAMINE BITARTRATE (MERCAPTAMINE BITARTRATE) (150 MG) [Suspect]
     Indication: CYSTINOSIS
     Dosage: ; ORAL, 900 MG; DAILY; ORAL, ; ORAL
     Route: 048
     Dates: start: 19961106
  3. MERCAPTAMINE BITARTRATE (MERCAPTAMINE BITARTRATE) (150 MG) [Suspect]
     Indication: CYSTINOSIS
     Dosage: ; ORAL, 900 MG; DAILY; ORAL, ; ORAL
     Route: 048
     Dates: start: 20070101
  4. POLYCITRA-LC [Concomitant]
  5. 1-ALPHA-HYDROXYCHOLECALCIFEROL [Concomitant]
  6. ENALAPRIL MALEATE [Concomitant]
  7. EPOETIN [Concomitant]

REACTIONS (8)
  - ABDOMINAL PAIN [None]
  - ANAEMIA [None]
  - ANTIPHOSPHOLIPID SYNDROME [None]
  - ENCEPHALOPATHY [None]
  - HYPOALBUMINAEMIA [None]
  - IMMUNOSUPPRESSANT DRUG LEVEL INCREASED [None]
  - LUPUS-LIKE SYNDROME [None]
  - PROTEINURIA [None]
